FAERS Safety Report 21055160 (Version 5)
Quarter: 2022Q4

REPORT INFORMATION
  Report Type: Report from Study
  Country: CH (occurrence: CH)
  Receive Date: 20220707
  Receipt Date: 20221104
  Transmission Date: 20230113
  Serious: Yes (Hospitalization, Other)
  Sender: FDA-Public Use
  Company Number: CH-BRISTOL-MYERS SQUIBB COMPANY-BMS-2021-024168

PATIENT
  Age: 54 Year
  Sex: Male
  Weight: 101 kg

DRUGS (7)
  1. NIVOLUMAB [Suspect]
     Active Substance: NIVOLUMAB
     Indication: Malignant melanoma
     Dosage: DOSE DELAYED; ONLY ONE DOSE OF NIVOLUMAB STUDY THERAPY.
     Route: 042
     Dates: start: 20210211, end: 20210406
  2. LINRODOSTAT MESYLATE [Suspect]
     Active Substance: LINRODOSTAT MESYLATE
     Indication: Malignant melanoma
     Dosage: MOST RECENT DOSE WAS RECEIVED ON 25-FEB-2021.
     Route: 048
     Dates: start: 20210211, end: 20210406
  3. DAFALGAN [Concomitant]
     Active Substance: ACETAMINOPHEN
     Indication: Product used for unknown indication
     Route: 048
     Dates: start: 2021
  4. NOVALGIN (METAMIZOLE SODIUM) [Concomitant]
     Active Substance: METAMIZOLE SODIUM
     Indication: Product used for unknown indication
     Route: 048
     Dates: start: 2021
  5. IBUPROFEN [Concomitant]
     Active Substance: IBUPROFEN
     Indication: Product used for unknown indication
     Route: 048
     Dates: start: 2021
  6. PREDNISONE [Concomitant]
     Active Substance: PREDNISONE
     Indication: Myocarditis
     Route: 048
     Dates: start: 20210302, end: 20210303
  7. PREDNISONE [Concomitant]
     Active Substance: PREDNISONE
     Indication: Myositis
     Route: 048
     Dates: start: 20210304, end: 20210309

REACTIONS (1)
  - Troponin increased [Recovered/Resolved]

NARRATIVE: CASE EVENT DATE: 20210309
